FAERS Safety Report 17696663 (Version 2)
Quarter: 2020Q4

REPORT INFORMATION
  Report Type: Spontaneous
  Country: US (occurrence: US)
  Receive Date: 20200423
  Receipt Date: 20201109
  Transmission Date: 20210113
  Serious: No
  Sender: FDA-Public Use
  Company Number: US-PURDUE-USA-2020-0149954

PATIENT
  Sex: Female

DRUGS (1)
  1. OXYCODONE HCL TABLETS (91-490) [Suspect]
     Active Substance: OXYCODONE HYDROCHLORIDE
     Indication: PAIN
     Dosage: 20 MG, Q6H
     Route: 048

REACTIONS (8)
  - Drug withdrawal syndrome [Recovered/Resolved]
  - Diarrhoea [Recovered/Resolved]
  - Pain [Recovered/Resolved]
  - Heart rate increased [Unknown]
  - Drug ineffective [Recovered/Resolved]
  - Product complaint [Unknown]
  - Feeling of body temperature change [Recovered/Resolved]
  - Vomiting [Recovered/Resolved]
